FAERS Safety Report 7495029-3 (Version None)
Quarter: 2011Q2

REPORT INFORMATION
  Report Type: 
  Country: None (occurrence: None)
  Receive Date: 20110520
  Receipt Date: 20110516
  Transmission Date: 20111010
  Serious: Yes (Hospitalization, Other)
  Sender: FDA-Public Use
  Company Number: US-ELI_LILLY_AND_COMPANY-US200906005619

PATIENT
  Weight: 86.621 kg

DRUGS (21)
  1. CYMBALTA [Concomitant]
     Dosage: 60 MG, DAILY (1/D)
  2. FUROSEMIDE [Concomitant]
  3. THEOPHYLLINE [Concomitant]
     Dosage: 0.3 MG, TID
  4. GLUCOPHAGE [Concomitant]
  5. ALENDRONATE SODIUM [Concomitant]
  6. ESOMEPRAZOLE MAGNESIUM [Concomitant]
     Dosage: 40 MG, QD
     Route: 048
  7. BACTRIM DS [Concomitant]
     Dosage: UNK, 2/D
  8. VITAMIN D [Concomitant]
     Dosage: 400 MG, QD
  9. COZAAR [Concomitant]
     Dosage: 50 MG, QD
  10. HYDROCHLOROTHIAZIDE [Concomitant]
     Dosage: 25 MG, DAILY (1/D)
  11. DIFLUCAN [Concomitant]
     Dosage: 150 MG, DAILY (1/D)
  12. ZANTAC [Concomitant]
     Dosage: 150 MG, BID
  13. LISINOPRIL [Concomitant]
     Dosage: 10 MG, BID
     Route: 048
  14. PROMETHAZINE [Concomitant]
  15. GLIPIZIDE [Concomitant]
  16. CLONIDINE [Concomitant]
  17. ALPRAZOLAM [Concomitant]
  18. DIPHENHYDRAMINE HCL [Concomitant]
     Dosage: 25 MG, QD
  19. PRILOSEC [Concomitant]
  20. INSULIN [Concomitant]
     Dosage: 10 UNK, UNK
     Route: 058
  21. BYETTA [Suspect]
     Dosage: 5 UG, 2/D
     Dates: start: 20080701, end: 20090101

REACTIONS (5)
  - RENAL INJURY [None]
  - PANCREATITIS ACUTE [None]
  - GASTRITIS [None]
  - CHOLECYSTECTOMY [None]
  - OFF LABEL USE [None]
